FAERS Safety Report 8220269-5 (Version None)
Quarter: 2012Q1

REPORT INFORMATION
  Report Type: 
  Country: None (occurrence: None)
  Receive Date: 20120320
  Receipt Date: 20120315
  Transmission Date: 20120608
  Serious: No
  Sender: FDA-Public Use
  Company Number: US-PFIZER INC-2012068983

PATIENT
  Age: 80 Year
  Sex: Male
  Weight: 68.027 kg

DRUGS (7)
  1. NORVASC [Suspect]
     Indication: CARDIAC DISORDER
     Dosage: 2.5 MG, DAILY
     Route: 048
     Dates: start: 20120210, end: 20120216
  2. ENALAPRIL [Concomitant]
     Indication: BLOOD PRESSURE ABNORMAL
     Dosage: 20 MG, DAILY
  3. FLOMAX [Concomitant]
     Indication: PROSTATIC DISORDER
     Dosage: 0.4 MG, 2X/DAY
  4. ACETYLSALICYLIC ACID [Concomitant]
     Dosage: UNK
  5. PINDOLOL [Concomitant]
     Indication: BLOOD PRESSURE ABNORMAL
     Dosage: 30 MG, DAILY
  6. FINASTERIDE [Concomitant]
     Indication: PROSTATIC DISORDER
     Dosage: 5 MG, DAILY
  7. METOPROLOL [Concomitant]
     Indication: BLOOD PRESSURE ABNORMAL
     Dosage: TWICE DAILY

REACTIONS (1)
  - HYPOAESTHESIA [None]
